FAERS Safety Report 23190023 (Version 1)
Quarter: 2023Q4

REPORT INFORMATION
  Report Type: Spontaneous
  Country: US (occurrence: US)
  Receive Date: 20231116
  Receipt Date: 20231116
  Transmission Date: 20240109
  Serious: No
  Sender: FDA-Public Use
  Company Number: US-BRISTOL-MYERS SQUIBB COMPANY-2023-163412

PATIENT
  Age: 65 Year
  Sex: Female

DRUGS (2)
  1. ABRAXANE [Suspect]
     Active Substance: PACLITAXEL
     Indication: Pancreatic carcinoma
     Dosage: DOSE : 221;     FREQ : EVERY 14 DAY
  2. ABRAXANE [Suspect]
     Active Substance: PACLITAXEL
     Dosage: 200MG ON DAYS 1 AND 8 EVERY 21 DAYS

REACTIONS (1)
  - Off label use [Unknown]
